FAERS Safety Report 11919776 (Version 2)
Quarter: 2016Q1

REPORT INFORMATION
  Report Type: Report from Study
  Country: US (occurrence: US)
  Receive Date: 20160115
  Receipt Date: 20160204
  Transmission Date: 20160526
  Serious: Yes (Other)
  Sender: FDA-Public Use
  Company Number: US-AMGEN-USASL2016001963

PATIENT
  Age: 62 Year
  Sex: Female

DRUGS (6)
  1. MULTAQ [Concomitant]
     Active Substance: DRONEDARONE
  2. ELIQUIS [Concomitant]
     Active Substance: APIXABAN
  3. PLAVIX [Concomitant]
     Active Substance: CLOPIDOGREL BISULFATE
  4. REPATHA [Suspect]
     Active Substance: EVOLOCUMAB
     Indication: BLOOD CHOLESTEROL INCREASED
     Dosage: 140 MG, Q2WK
     Route: 065
     Dates: start: 20151229
  5. REPATHA [Suspect]
     Active Substance: EVOLOCUMAB
     Indication: BLOOD TRIGLYCERIDES INCREASED
  6. ASA [Concomitant]
     Active Substance: ASPIRIN

REACTIONS (6)
  - Influenza like illness [Recovered/Resolved]
  - Injection site erythema [Unknown]
  - Amnesia [Unknown]
  - Injection site swelling [Unknown]
  - Abnormal behaviour [Unknown]
  - Sleep disorder [Unknown]

NARRATIVE: CASE EVENT DATE: 201512
